FAERS Safety Report 8971621 (Version 1)
Quarter: 2012Q4

REPORT INFORMATION
  Report Type: 
  Country: US (occurrence: US)
  Receive Date: 20121217
  Receipt Date: 20121217
  Transmission Date: 20130627
  Serious: Yes (Hospitalization)
  Sender: FDA-Public Use
  Company Number: US-ROCHE-1025604

PATIENT
  Age: 50 None
  Sex: Male
  Weight: 49.94 kg

DRUGS (7)
  1. ZELBORAF [Suspect]
     Indication: METASTATIC MALIGNANT MELANOMA
     Route: 048
     Dates: start: 201112
  2. ZELBORAF [Suspect]
     Indication: METASTATIC MALIGNANT MELANOMA
     Route: 048
     Dates: start: 201203
  3. METAMUCIL [Concomitant]
     Indication: CONSTIPATION
     Route: 048
  4. PERCOCET [Concomitant]
     Route: 048
  5. MORPHINE [Concomitant]
     Dosage: every 2-4 hours
     Route: 048
     Dates: start: 201211
  6. VALIUM [Concomitant]
     Dosage: every night
     Route: 048
     Dates: start: 201112
  7. PROZAC [Concomitant]
     Dosage: daily
     Route: 065
     Dates: start: 201106

REACTIONS (32)
  - Arthralgia [Unknown]
  - Nausea [Unknown]
  - Diarrhoea [Not Recovered/Not Resolved]
  - Pruritus [Unknown]
  - Rash [Not Recovered/Not Resolved]
  - Decreased appetite [Unknown]
  - Fatigue [Not Recovered/Not Resolved]
  - Sunburn [Recovered/Resolved]
  - Burning sensation [Unknown]
  - Cough [Unknown]
  - Sneezing [Unknown]
  - Mass [Not Recovered/Not Resolved]
  - Constipation [Recovered/Resolved]
  - Poor quality sleep [Unknown]
  - Alopecia [Unknown]
  - Paraesthesia [Unknown]
  - Headache [Not Recovered/Not Resolved]
  - Pain [Unknown]
  - Fall [Unknown]
  - Mass [Not Recovered/Not Resolved]
  - Pain [Not Recovered/Not Resolved]
  - Dizziness [Recovered/Resolved]
  - Excoriation [Recovered/Resolved]
  - Acne [Not Recovered/Not Resolved]
  - Acne [Not Recovered/Not Resolved]
  - Rash [Not Recovered/Not Resolved]
  - Cerebrovascular accident [Recovered/Resolved]
  - Weight decreased [Not Recovered/Not Resolved]
  - Angiopathy [Recovered/Resolved]
  - Vision blurred [Recovered/Resolved]
  - Headache [Recovered/Resolved]
  - Cerebral disorder [Recovered/Resolved]
